APPROVED DRUG PRODUCT: DOXEPIN HYDROCHLORIDE
Active Ingredient: DOXEPIN HYDROCHLORIDE
Strength: EQ 50MG BASE
Dosage Form/Route: CAPSULE;ORAL
Application: A070954 | Product #001
Applicant: WATSON LABORATORIES INC
Approved: May 15, 1986 | RLD: No | RS: No | Type: DISCN